FAERS Safety Report 10777570 (Version 1)
Quarter: 2015Q1

REPORT INFORMATION
  Report Type: Spontaneous
  Country: US (occurrence: US)
  Receive Date: 20150209
  Receipt Date: 20150209
  Transmission Date: 20150721
  Serious: No
  Sender: FDA-Public Use
  Company Number: US-GILEAD-2015-0136255

PATIENT
  Age: 47 Year
  Sex: Male

DRUGS (11)
  1. TYVASO [Suspect]
     Active Substance: TREPROSTINIL
     Route: 065
  2. ALBUTEROL SULFATE. [Concomitant]
     Active Substance: ALBUTEROL SULFATE
  3. HYOSCYAMINE [Concomitant]
     Active Substance: HYOSCYAMINE
  4. LETAIRIS [Suspect]
     Active Substance: AMBRISENTAN
     Indication: COR PULMONALE CHRONIC
     Dosage: 10 MG, QD
     Route: 065
     Dates: start: 20140105
  5. CYANOCOBALAMIN. [Concomitant]
     Active Substance: CYANOCOBALAMIN
  6. SEROQUEL [Concomitant]
     Active Substance: QUETIAPINE FUMARATE
  7. HYDROCHLOROTHIAZIDE. [Concomitant]
     Active Substance: HYDROCHLOROTHIAZIDE
  8. ESZOPICLONE. [Concomitant]
     Active Substance: ESZOPICLONE
  9. ADCIRCA [Suspect]
     Active Substance: TADALAFIL
     Indication: DRUG ABUSE
     Route: 065
  10. SUMATRIPTAN. [Concomitant]
     Active Substance: SUMATRIPTAN
  11. OXYCODONE [Concomitant]
     Active Substance: OXYCODONE

REACTIONS (1)
  - Headache [Not Recovered/Not Resolved]

NARRATIVE: CASE EVENT DATE: 201501
